FAERS Safety Report 9526714 (Version 1)
Quarter: 2013Q3

REPORT INFORMATION
  Report Type: Spontaneous
  Country: US (occurrence: US)
  Receive Date: 20130916
  Receipt Date: 20130916
  Transmission Date: 20140515
  Serious: No
  Sender: FDA-Public Use
  Company Number: US-009507513-1309USA005822

PATIENT
  Sex: Female

DRUGS (2)
  1. JANUVIA [Suspect]
     Indication: DIABETES MELLITUS
     Dosage: 100 MG ONCE A DAY
     Route: 048
     Dates: start: 201303
  2. METFORMIN [Concomitant]

REACTIONS (2)
  - Blood glucose increased [Unknown]
  - Exposure during pregnancy [Unknown]
